FAERS Safety Report 7470224-8 (Version None)
Quarter: 2011Q2

REPORT INFORMATION
  Report Type: 
  Country: None (occurrence: None)
  Receive Date: 20110510
  Receipt Date: 20110503
  Transmission Date: 20111010
  Serious: Yes (Hospitalization)
  Sender: FDA-Public Use
  Company Number: FR-PFIZER INC-2011095479

PATIENT
  Age: 25 Year
  Sex: Female

DRUGS (1)
  1. SIROLIMUS [Suspect]
     Dosage: UNK

REACTIONS (1)
  - SUDDEN HEARING LOSS [None]
